FAERS Safety Report 6467774-X (Version None)
Quarter: 2009Q4

REPORT INFORMATION
  Report Type: 
  Country: None (occurrence: None)
  Receive Date: 20091127
  Receipt Date: 20091112
  Transmission Date: 20100525
  Serious: Yes (Other)
  Sender: FDA-Public Use
  Company Number: 1000009222

PATIENT
  Age: 93 Year
  Sex: Female

DRUGS (8)
  1. ESCITALOPRAM [Suspect]
     Indication: DEPRESSION
     Dosage: 5 MG (5 MG) ORAL
     Route: 048
     Dates: start: 20070223
  2. RISEDRONATE (TABLETS_) [Concomitant]
  3. DISGREN [Concomitant]
  4. CALCIUM -SANDOZ FORTE-D [Concomitant]
  5. PEPTICUM [Concomitant]
  6. ORFIDAL [Concomitant]
  7. LEXATIN [Concomitant]
  8. BONIVA [Concomitant]

REACTIONS (2)
  - ANGIOEDEMA [None]
  - URTICARIA [None]
